FAERS Safety Report 6653608-7 (Version None)
Quarter: 2010Q1

REPORT INFORMATION
  Report Type: 
  Country: None (occurrence: None)
  Receive Date: 20100326
  Receipt Date: 20100317
  Transmission Date: 20100710
  Serious: Yes (Death)
  Sender: FDA-Public Use
  Company Number: FR-JNJFOC-20100104472

PATIENT
  Sex: Male

DRUGS (19)
  1. STELARA [Suspect]
     Indication: PSORIASIS
     Dosage: 5 DOSES ON 16 MARCH, 14 APRIL, 15 JUN, 27 JULY, 27 OCT 2009
     Route: 058
     Dates: end: 20090101
  2. STELARA [Suspect]
     Dosage: 5 DOSES ON 16 MARCH, 14 APRIL, 15 JUN, 27 JULY, 27 OCT 2009
     Route: 058
     Dates: end: 20090101
  3. STELARA [Suspect]
     Dosage: 5 DOSES ON 16 MARCH, 14 APRIL, 15 JUN, 27 JULY, 27 OCT 2009
     Route: 058
     Dates: end: 20090101
  4. STELARA [Suspect]
     Dosage: 5 DOSES ON 16 MARCH, 14 APRIL, 15 JUN, 27 JULY, 27 OCT 2009
     Route: 058
     Dates: end: 20090101
  5. STELARA [Suspect]
     Route: 058
     Dates: end: 20090101
  6. OXYCONTIN [Concomitant]
     Dosage: 2-0-1
  7. CORTANCYL [Concomitant]
  8. SORIATANE [Concomitant]
  9. DIFFU K [Concomitant]
     Dosage: 2-2-2
  10. AMLOR [Concomitant]
  11. OXYCODONE HCL [Concomitant]
  12. TERCIAN [Concomitant]
     Route: 048
  13. AMITRIPTYLINE HCL [Concomitant]
  14. RIVOTRIL [Concomitant]
  15. INIPOMP [Concomitant]
     Indication: GASTRIC ULCER
  16. HUMALOG [Concomitant]
     Dosage: 150 IU- 120 IU - 80 IU
  17. HIBITANE [Concomitant]
     Route: 003
  18. TRIDESONIT [Concomitant]
     Route: 003
  19. BACTROBAN [Concomitant]
     Route: 003

REACTIONS (1)
  - DEATH [None]
